FAERS Safety Report 15189751 (Version 3)
Quarter: 2018Q3

REPORT INFORMATION
  Report Type: Spontaneous
  Country: TW (occurrence: TW)
  Receive Date: 20180724
  Receipt Date: 20180807
  Transmission Date: 20181010
  Serious: Yes (Death, Hospitalization, Other)
  Sender: FDA-Public Use
  Company Number: TW-PFIZER INC-2018292681

PATIENT
  Age: 58 Year
  Sex: Male

DRUGS (3)
  1. LEUCOVORIN /00566701/ [Concomitant]
     Active Substance: LEUCOVORIN
     Indication: COLORECTAL ADENOCARCINOMA
     Dosage: 400 MG/M2, CYCLIC (BI?WEEKLY)
     Dates: start: 20161230, end: 20170519
  2. OXALIPLATIN. [Suspect]
     Active Substance: OXALIPLATIN
     Indication: COLORECTAL ADENOCARCINOMA
     Dosage: 85 MG/M2, CYCLIC
     Dates: start: 20161230, end: 20170519
  3. 5 FLUOROURACIL /00098801/ [Concomitant]
     Active Substance: FLUOROURACIL
     Indication: COLORECTAL ADENOCARCINOMA
     Dosage: 2400 MG/M2, CYCLIC
     Dates: start: 20161230, end: 20170519

REACTIONS (2)
  - Alveolitis allergic [Recovering/Resolving]
  - Interstitial lung disease [Recovering/Resolving]

NARRATIVE: CASE EVENT DATE: 20170519
